FAERS Safety Report 9265200 (Version 1)
Quarter: 2013Q2

REPORT INFORMATION
  Report Type: Spontaneous
  Country: JP (occurrence: JP)
  Receive Date: 20130501
  Receipt Date: 20130501
  Transmission Date: 20140414
  Serious: Yes (Hospitalization)
  Sender: FDA-Public Use
  Company Number: JP-PFIZER INC-2013129199

PATIENT
  Age: 18 Year
  Sex: Female

DRUGS (4)
  1. FLUVOXAMINE MALEATE [Suspect]
     Dosage: 25 MG, UNK
  2. ALPRAZOLAM [Suspect]
     Dosage: 0.8 MG, UNK
  3. ALPRAZOLAM [Suspect]
     Dosage: 30 TABLETS
  4. BROTIZOLAM [Suspect]
     Dosage: 0.25 MG, UNK

REACTIONS (4)
  - Intentional overdose [Unknown]
  - Intentional self-injury [Unknown]
  - Somnolence [Unknown]
  - Insomnia [Unknown]
